FAERS Safety Report 11659292 (Version 1)
Quarter: 2015Q4

REPORT INFORMATION
  Report Type: Spontaneous
  Country: IT (occurrence: IT)
  Receive Date: 20151026
  Receipt Date: 20151026
  Transmission Date: 20160304
  Serious: Yes (Hospitalization)
  Sender: FDA-Public Use
  Company Number: IT-SUN PHARMACEUTICAL INDUSTRIES LTD-2014RR-104867

PATIENT

DRUGS (2)
  1. PARACETAMOL [Suspect]
     Active Substance: ACETAMINOPHEN
     Indication: PYREXIA
     Dosage: 1 DF WHEN NEEDED
     Route: 048
     Dates: start: 20140325, end: 20140331
  2. ANTISPASMINA COLICA [Suspect]
     Active Substance: BELLADONNA LEAF\PAPAVERINE HYDROCHLORIDE
     Indication: ABDOMINAL RIGIDITY
     Dosage: UNK
     Route: 048
     Dates: start: 20140325, end: 20140328

REACTIONS (2)
  - Adverse drug reaction [Recovering/Resolving]
  - Rash [Recovering/Resolving]

NARRATIVE: CASE EVENT DATE: 20140329
